FAERS Safety Report 6071235-X (Version None)
Quarter: 2009Q1

REPORT INFORMATION
  Report Type: 
  Country: None (occurrence: None)
  Receive Date: 20090209
  Receipt Date: 20090128
  Transmission Date: 20090719
  Serious: Yes (Hospitalization)
  Sender: FDA-Public Use
  Company Number: JP-ELI_LILLY_AND_COMPANY-JP200901005379

PATIENT
  Age: 35 Year
  Sex: Female

DRUGS (1)
  1. ZYPREXA [Suspect]
     Dosage: 100 MG, UNK
     Route: 048
     Dates: start: 20090126, end: 20090126

REACTIONS (3)
  - ALTERED STATE OF CONSCIOUSNESS [None]
  - HYPERTHERMIA [None]
  - OVERDOSE [None]
